FAERS Safety Report 14742149 (Version 2)
Quarter: 2018Q3

REPORT INFORMATION
  Report Type: Spontaneous
  Country: CZ (occurrence: CZ)
  Receive Date: 20180410
  Receipt Date: 20180828
  Transmission Date: 20181010
  Serious: No
  Sender: FDA-Public Use
  Company Number: CZ-SA-2018SA092551

PATIENT
  Age: 43 Year
  Sex: Male

DRUGS (2)
  1. SEFOTAK [Suspect]
     Active Substance: CEFOTAXIME SODIUM
     Indication: INFLAMMATION
     Dosage: 6 G,QD
     Route: 042
     Dates: start: 201607
  2. ACICLOVIR [Suspect]
     Active Substance: ACYCLOVIR
     Indication: INFLAMMATION
     Dosage: 2250 MG,QD
     Route: 042
     Dates: start: 201607

REACTIONS (1)
  - No adverse event [Unknown]
